FAERS Safety Report 9735891 (Version 3)
Quarter: 2015Q3

REPORT INFORMATION
  Report Type: Spontaneous
  Country: US (occurrence: US)
  Receive Date: 20131206
  Receipt Date: 20150804
  Transmission Date: 20151125
  Serious: No
  Sender: FDA-Public Use
  Company Number: US-GILEAD-2009-0023990

PATIENT
  Age: 50 Year
  Sex: Female
  Weight: 83.01 kg

DRUGS (10)
  1. VERAMYST [Concomitant]
     Active Substance: FLUTICASONE FUROATE
  2. REVATIO [Concomitant]
     Active Substance: SILDENAFIL CITRATE
  3. FUROSEMIDE. [Concomitant]
     Active Substance: FUROSEMIDE
  4. LETAIRIS [Suspect]
     Active Substance: AMBRISENTAN
     Indication: PULMONARY ARTERIAL HYPERTENSION
     Route: 048
     Dates: start: 20090318
  5. COZAAR [Concomitant]
     Active Substance: LOSARTAN POTASSIUM
  6. SINGULAIR [Concomitant]
     Active Substance: MONTELUKAST SODIUM
  7. TYLENOL [Concomitant]
     Active Substance: ACETAMINOPHEN
  8. KLOR-CON [Concomitant]
     Active Substance: POTASSIUM CHLORIDE
  9. VENTAVIS [Concomitant]
     Active Substance: ILOPROST
  10. NASONEX [Concomitant]
     Active Substance: MOMETASONE FUROATE

REACTIONS (4)
  - Hot flush [Unknown]
  - Nasal congestion [Unknown]
  - Arthralgia [Unknown]
  - Oedema peripheral [Unknown]
